FAERS Safety Report 14657124 (Version 1)
Quarter: 2018Q1

REPORT INFORMATION
  Report Type: Spontaneous
  Country: BE (occurrence: BE)
  Receive Date: 20180319
  Receipt Date: 20180319
  Transmission Date: 20180509
  Serious: Yes (Other)
  Sender: FDA-Public Use
  Company Number: BE-PFIZER INC-2018108637

PATIENT
  Age: 71 Year
  Weight: 76 kg

DRUGS (7)
  1. DEXAMETHASONE. [Concomitant]
     Active Substance: DEXAMETHASONE
     Dosage: 20 MG
     Route: 042
  2. APREPITANT. [Concomitant]
     Active Substance: APREPITANT
     Dosage: 125 MG
  3. PACLITAXEL. [Suspect]
     Active Substance: PACLITAXEL
     Dosage: 316.75 MG
     Route: 042
  4. CETRIZINE [Concomitant]
     Active Substance: CETIRIZINE HYDROCHLORIDE
     Dosage: 50 MG
  5. RANITIDINE. [Concomitant]
     Active Substance: RANITIDINE
     Dosage: 50 MG
     Route: 042
  6. ALIZAPRIDE [Concomitant]
     Active Substance: ALIZAPRIDE
     Dosage: 50 MG
     Route: 042
  7. CARBOPLATIN. [Concomitant]
     Active Substance: CARBOPLATIN
     Dosage: 500 MG
     Route: 042

REACTIONS (3)
  - Pain [Unknown]
  - Oxygen saturation decreased [Unknown]
  - Bronchospasm [Unknown]

NARRATIVE: CASE EVENT DATE: 20170913
